FAERS Safety Report 16281053 (Version 1)
Quarter: 2019Q2

REPORT INFORMATION
  Report Type: Report from Study
  Country: US (occurrence: US)
  Receive Date: 20190507
  Receipt Date: 20190507
  Transmission Date: 20190711
  Serious: Yes (Hospitalization)
  Sender: FDA-Public Use
  Company Number: US-JNJFOC-20190501481

PATIENT
  Age: 71 Year
  Sex: Male

DRUGS (17)
  1. MULTIVITAMINS [Concomitant]
     Active Substance: VITAMINS
  2. CIALIS [Concomitant]
     Active Substance: TADALAFIL
  3. VITAMIN C [Concomitant]
     Active Substance: ASCORBIC ACID
  4. FISH OIL [Concomitant]
     Active Substance: FISH OIL
  5. MIRALAX [Concomitant]
     Active Substance: POLYETHYLENE GLYCOL 3350
  6. ONDANSETRON [Concomitant]
     Active Substance: ONDANSETRON
  7. LEVOFLOXACIN. [Interacting]
     Active Substance: LEVOFLOXACIN
     Indication: PRODUCT USED FOR UNKNOWN INDICATION
     Route: 065
  8. DOXYCYCLINE. [Interacting]
     Active Substance: DOXYCYCLINE
     Indication: EAR INFECTION
     Route: 065
  9. VITAMIN B COMPLEX [Concomitant]
     Active Substance: CYANOCOBALAMIN\DEXPANTHENOL\NIACINAMIDE\PYRIDOXINE HYDROCHLORIDE\RIBOFLAVIN 5^-PHOSPHATE SODIUM\THIAMINE HYDROCHLORIDE\VITAMIN B COMPLEX
  10. LORAZEPAM. [Concomitant]
     Active Substance: LORAZEPAM
  11. ATORVASTATIN [Concomitant]
     Active Substance: ATORVASTATIN
  12. GABAPENTIN. [Concomitant]
     Active Substance: GABAPENTIN
  13. IMBRUVICA [Suspect]
     Active Substance: IBRUTINIB
     Indication: CHRONIC LYMPHOCYTIC LEUKAEMIA
     Route: 048
     Dates: start: 20181220
  14. ALLEGRA [Suspect]
     Active Substance: FEXOFENADINE HYDROCHLORIDE
     Indication: PRODUCT USED FOR UNKNOWN INDICATION
  15. GLIMEPIRIDE. [Concomitant]
     Active Substance: GLIMEPIRIDE
  16. TOCOPHEROL [Concomitant]
     Active Substance: TOCOPHEROL
  17. ACETYLSALICYLIC ACID [Concomitant]
     Active Substance: ASPIRIN

REACTIONS (5)
  - Abdominal pain upper [Unknown]
  - Ear infection [Unknown]
  - Gastrointestinal disorder [Unknown]
  - Drug interaction [Unknown]
  - Herpes zoster [Unknown]

NARRATIVE: CASE EVENT DATE: 20190116
